FAERS Safety Report 7343102-2 (Version None)
Quarter: 2011Q1

REPORT INFORMATION
  Report Type: 
  Country: None (occurrence: None)
  Receive Date: 20110310
  Receipt Date: 20110228
  Transmission Date: 20110831
  Serious: Yes (Hospitalization)
  Sender: FDA-Public Use
  Company Number: US-ELI_LILLY_AND_COMPANY-US201101005301

PATIENT
  Sex: Female
  Weight: 131.52 kg

DRUGS (1)
  1. EFFIENT [Suspect]
     Dates: start: 20101125

REACTIONS (1)
  - HOSPITALISATION [None]
